FAERS Safety Report 6792338-8 (Version None)
Quarter: 2010Q2

REPORT INFORMATION
  Report Type: 
  Country: None (occurrence: None)
  Receive Date: 20100624
  Receipt Date: 20081219
  Transmission Date: 20101027
  Serious: Yes (Other)
  Sender: FDA-Public Use
  Company Number: US-PFIZER INC-2008063953

PATIENT
  Sex: Female
  Weight: 50 kg

DRUGS (3)
  1. DEPO-SUBQ PROVERA 104 [Suspect]
     Indication: CONTRACEPTION
     Dosage: FIRST INJECTION, Q11-13 WEEKS
     Route: 058
     Dates: start: 20060314, end: 20060314
  2. DEPO-SUBQ PROVERA 104 [Suspect]
     Dosage: LAST INJECTION
     Route: 058
     Dates: start: 20070301, end: 20070301
  3. CALCIUM [Concomitant]
     Dosage: DAILY

REACTIONS (2)
  - INJECTION SITE PAIN [None]
  - INJECTION SITE REACTION [None]
